FAERS Safety Report 4445007-3 (Version None)
Quarter: 2004Q3

REPORT INFORMATION
  Report Type: 
  Country: None (occurrence: None)
  Receive Date: 20040907
  Receipt Date: 20040824
  Transmission Date: 20050211
  Serious: Yes (Hospitalization, Other)
  Sender: FDA-Public Use
  Company Number: 2004059077

PATIENT
  Age: 54 Year
  Sex: Male
  Weight: 111 kg

DRUGS (13)
  1. ATORVASTATIN CALCIUM [Suspect]
     Indication: ATHEROSCLEROSIS
     Dosage: 60 MG (40 MG, 1 IN 1 D), ORAL
     Route: 048
     Dates: end: 20040726
  2. ATORVASTATIN CALCIUM [Suspect]
     Indication: HYPERCHOLESTEROLAEMIA
     Dosage: 60 MG (40 MG, 1 IN 1 D), ORAL
     Route: 048
     Dates: end: 20040726
  3. FLUOXETINE HYDROCHLORIDE [Suspect]
     Indication: EATING DISORDER
     Dosage: 20 MG (20 MG, 1 IN 1 D), ORAL
     Route: 048
     Dates: start: 20030501
  4. CLOPIDOGREL BISULFATE [Concomitant]
  5. NICORANDIL (NICORANDIL) [Concomitant]
  6. FUROSEMIDE [Concomitant]
  7. BISOPROLOL FUMARATE (BISPROLOL FUMARATE) [Concomitant]
  8. ASPIRIN [Concomitant]
  9. GABAPENTIN [Concomitant]
  10. IRBESARTAN (IRBESARTAN) [Concomitant]
  11. LISINOPRIL [Concomitant]
  12. AMLODIPINE BESYLATE [Concomitant]
  13. ZOLPIDEM TARTRATE [Concomitant]

REACTIONS (15)
  - ACUTE CORONARY SYNDROME [None]
  - BLOOD CREATINE PHOSPHOKINASE INCREASED [None]
  - BLOOD CREATININE INCREASED [None]
  - CHEST PAIN [None]
  - CHILLS [None]
  - COUGH [None]
  - EATING DISORDER [None]
  - ELECTROCARDIOGRAM ABNORMAL [None]
  - INFLAMMATION [None]
  - MYOPATHY [None]
  - PAIN IN EXTREMITY [None]
  - PYREXIA [None]
  - THERAPEUTIC RESPONSE DECREASED [None]
  - TROPONIN INCREASED [None]
  - VIRAL INFECTION [None]
